FAERS Safety Report 4697318-4 (Version None)
Quarter: 2005Q2

REPORT INFORMATION
  Report Type: 
  Country: None (occurrence: None)
  Receive Date: 20050620
  Receipt Date: 20050518
  Transmission Date: 20051028
  Serious: Yes (Hospitalization)
  Sender: FDA-Public Use
  Company Number: AWBNIASPAND2004-68

PATIENT
  Age: 63 Year
  Sex: Female

DRUGS (5)
  1. NIASPAN [Suspect]
     Indication: DYSLIPIDAEMIA
     Dosage: 500 MG QD PO
     Route: 048
     Dates: start: 20050217, end: 20050324
  2. RAMIPRIL [Concomitant]
  3. NITRENDIPINE [Concomitant]
  4. INSULIN [Concomitant]
  5. FENOFIBRATE [Concomitant]

REACTIONS (6)
  - BILIARY TRACT DISORDER [None]
  - GASTRITIS EROSIVE [None]
  - HEPATIC STEATOSIS [None]
  - HEPATITIS [None]
  - HEPATOMEGALY [None]
  - HYPOKALAEMIA [None]
